FAERS Safety Report 8274241-X (Version None)
Quarter: 2012Q2

REPORT INFORMATION
  Report Type: 
  Country: None (occurrence: None)
  Receive Date: 20120411
  Receipt Date: 20120402
  Transmission Date: 20120825
  Serious: Yes (Other)
  Sender: FDA-Public Use
  Company Number: GB-ASTRAZENECA-2012SE09730

PATIENT
  Sex: Male
  Weight: 99 kg

DRUGS (14)
  1. BENDROFLUAZIDE [Concomitant]
     Route: 048
  2. LANSOPRAZOLE [Concomitant]
     Route: 048
  3. SYMBICORT [Suspect]
     Dosage: REDUCED DOSE WITH UNKNOWN FREQUENCY
     Route: 055
  4. SINGULAIR [Concomitant]
  5. MOXONIDINE [Concomitant]
     Route: 048
     Dates: start: 20060411
  6. ALISKIREN [Concomitant]
     Route: 048
  7. DILTIAZEM HCL [Concomitant]
     Route: 048
  8. CANDESARTAN CILEXETIL [Concomitant]
  9. SYMBICORT [Suspect]
     Dosage: 200/6 MCG TWO PUFFS TWICE A DAY
     Route: 055
     Dates: end: 20120321
  10. SIMVASTATIN [Concomitant]
     Indication: BLOOD CHOLESTEROL INCREASED
     Route: 048
     Dates: start: 20060411
  11. BISOPROLOL FUMARATE [Concomitant]
  12. SYMBICORT [Suspect]
     Indication: ASTHMA
     Dosage: 200/6 MCG TWO PUFFS TWICE A DAY
     Route: 055
     Dates: start: 20111014
  13. DOXAZOSIN MESYLATE [Concomitant]
  14. TERBUTALINE [Concomitant]
     Dosage: 500 MG, 1 PUFF QD

REACTIONS (3)
  - INTENTIONAL DRUG MISUSE [None]
  - DIABETES MELLITUS INADEQUATE CONTROL [None]
  - HYPOTHYROIDISM [None]
